FAERS Safety Report 16863113 (Version 1)
Quarter: 2019Q3

REPORT INFORMATION
  Report Type: Spontaneous
  Country: US (occurrence: US)
  Receive Date: 20190927
  Receipt Date: 20190927
  Transmission Date: 20191005
  Serious: Yes (Other)
  Sender: FDA-Public Use
  Company Number: US-MYLANLABS-2019M1089493

PATIENT
  Sex: Male

DRUGS (3)
  1. RILUZOLE. [Suspect]
     Active Substance: RILUZOLE
     Indication: SPINOCEREBELLAR ATAXIA
     Route: 065
  2. AMANTADINE. [Suspect]
     Active Substance: AMANTADINE HYDROCHLORIDE
     Indication: SPINOCEREBELLAR ATAXIA
     Route: 065
  3. VARENICLINE [Suspect]
     Active Substance: VARENICLINE
     Indication: SPINOCEREBELLAR ATAXIA
     Route: 065

REACTIONS (1)
  - Drug ineffective [Unknown]
